FAERS Safety Report 6624289-3 (Version None)
Quarter: 2010Q1

REPORT INFORMATION
  Report Type: 
  Country: None (occurrence: None)
  Receive Date: 20100310
  Receipt Date: 20091105
  Transmission Date: 20100710
  Serious: No
  Sender: FDA-Public Use
  Company Number: US-BIOGENIDEC-2009BI035756

PATIENT
  Age: 29 Year
  Sex: Male

DRUGS (3)
  1. AVONEX [Suspect]
     Indication: MULTIPLE SCLEROSIS
     Route: 030
     Dates: start: 20040101, end: 20060101
  2. AVONEX [Suspect]
     Route: 030
     Dates: start: 20060101
  3. AMANTADINE HCL [Concomitant]
     Indication: SOMNOLENCE

REACTIONS (4)
  - FEAR OF NEEDLES [None]
  - FEELING ABNORMAL [None]
  - HYPERTENSION [None]
  - PAIN [None]
